FAERS Safety Report 8792885 (Version 1)
Quarter: 2012Q4

REPORT INFORMATION
  Report Type: 
  Country: BR (occurrence: BR)
  Receive Date: 20120918
  Receipt Date: 20120918
  Transmission Date: 20130627
  Serious: Yes (Other)
  Sender: FDA-Public Use
  Company Number: BR-PFIZER INC-2012227888

PATIENT
  Age: 32 Year
  Sex: Female

DRUGS (3)
  1. CELEBRA [Suspect]
     Indication: PAIN IN EXTREMITY
     Dosage: UNK
     Route: 048
     Dates: start: 20090320
  2. LEXAPRO [Concomitant]
     Indication: ANTIDEPRESSANT THERAPY
     Dosage: UNK
     Dates: start: 2011
  3. LEXAPRO [Concomitant]
     Indication: ANXIETY

REACTIONS (1)
  - Visual field defect [Not Recovered/Not Resolved]
